FAERS Safety Report 7866381-1 (Version None)
Quarter: 2011Q4

REPORT INFORMATION
  Report Type: 
  Country: None (occurrence: None)
  Receive Date: 20111028
  Receipt Date: 20110607
  Transmission Date: 20120403
  Serious: No
  Sender: FDA-Public Use
  Company Number: US-GLAXOSMITHKLINE-A0930616A

PATIENT
  Age: 86 Year
  Sex: Male

DRUGS (17)
  1. SPIRIVA [Concomitant]
  2. GLIPIZIDE [Concomitant]
  3. LIPITOR [Concomitant]
  4. ISOSORBIDE DINITRATE [Concomitant]
  5. JANUVIA [Concomitant]
  6. SYNTHROID [Concomitant]
  7. OMEPRAZOLE [Concomitant]
  8. GABAPENTIN [Concomitant]
  9. CYMBALTA [Concomitant]
  10. METOPROLOL TARTRATE [Concomitant]
  11. ASPIRIN [Concomitant]
  12. ANDROGEL [Concomitant]
  13. NITROGLYCERIN [Concomitant]
  14. VITAMIN D [Concomitant]
  15. ADVAIR DISKUS 100/50 [Suspect]
     Indication: BRONCHITIS
     Dosage: 1PUFF TWICE PER DAY
     Route: 055
     Dates: start: 20110518
  16. DIOVAN [Concomitant]
  17. CRYSTALLINE VIT B12 INJ [Concomitant]

REACTIONS (1)
  - BLOOD GLUCOSE INCREASED [None]
